FAERS Safety Report 25659072 (Version 1)
Quarter: 2025Q3

REPORT INFORMATION
  Report Type: Spontaneous
  Country: US (occurrence: US)
  Receive Date: 20250808
  Receipt Date: 20250808
  Transmission Date: 20251021
  Serious: No
  Sender: SANOFI AVENTIS
  Company Number: US-SA-2025SA231962

PATIENT
  Age: 63 Year
  Sex: Female
  Weight: 76.2 kg

DRUGS (1)
  1. DUPIXENT [Suspect]
     Active Substance: DUPILUMAB
     Indication: Dermatitis atopic
     Route: 058
     Dates: end: 2025

REACTIONS (3)
  - Photopsia [Unknown]
  - Vitreous floaters [Unknown]
  - Visual impairment [Unknown]

NARRATIVE: CASE EVENT DATE: 20250725
